FAERS Safety Report 5637749-9 (Version None)
Quarter: 2008Q1

REPORT INFORMATION
  Report Type: 
  Country: None (occurrence: None)
  Receive Date: 20080225
  Receipt Date: 20080218
  Transmission Date: 20080703
  Serious: Yes (Hospitalization)
  Sender: FDA-Public Use
  Company Number: PHHO2008US02505

PATIENT
  Age: 58 Year
  Sex: Male
  Weight: 81.64 kg

DRUGS (1)
  1. AMN107 [Suspect]
     Indication: CHRONIC MYELOID LEUKAEMIA
     Dosage: 400 MG, QD
     Route: 048

REACTIONS (3)
  - ARTHRALGIA [None]
  - CHEST PAIN [None]
  - SYNCOPE [None]
